FAERS Safety Report 6781681 (Version 2)
Quarter: 2014Q2

REPORT INFORMATION
  Report Type: Spontaneous
  Country: US (occurrence: None)
  Receive Date: 20080925
  Receipt Date: 20140616
  Transmission Date: 20141212
  Serious: Yes (Hospitalization, Other)
  Sender: FDA-Public Use
  Company Number: 2008S1009162

PATIENT
  Age: 76 Year
  Sex: Female
  Weight: 61.24 kg

DRUGS (6)
  1. FLEET PHOSPHO-SODA ORAL SALINE LAXATIVE, GINGER-LEMON FLAVOR (ORAL SOLUTION) [Suspect]
     Indication: COLONOSCOPY
     Dosage: 45 ML; ;PO
     Route: 048
     Dates: start: 200504, end: 200504
  2. FLEET ENEMA [Suspect]
     Route: 054
     Dates: start: 20070116, end: 20070116
  3. LIPITOR (ATORVASTATIN CALCIUM) [Concomitant]
  4. DIOVAN (VALSARTAN) [Concomitant]
  5. AMITRIPTYLINE (AMITRIPTYLINE) [Concomitant]
  6. AMBIEN (ZOLPIDEM TARTRATE) [Concomitant]

REACTIONS (23)
  - Renal failure chronic [None]
  - Anaemia [None]
  - Neuropathy peripheral [None]
  - Asthenia [None]
  - Fatigue [None]
  - Nausea [None]
  - Influenza like illness [None]
  - Discomfort [None]
  - Renal failure acute [None]
  - Nephrocalcinosis [None]
  - Pain [None]
  - Organ failure [None]
  - Influenza like illness [None]
  - Abdominal pain [None]
  - Headache [None]
  - Renal tubular necrosis [None]
  - Dehydration [None]
  - Hyperkalaemia [None]
  - Haemolysis [None]
  - Dyspepsia [None]
  - Depression [None]
  - Blood sodium decreased [None]
  - Myalgia [None]
